FAERS Safety Report 18975681 (Version 1)
Quarter: 2021Q1

REPORT INFORMATION
  Report Type: Spontaneous
  Country: US (occurrence: US)
  Receive Date: 20210305
  Receipt Date: 20210305
  Transmission Date: 20210420
  Serious: No
  Sender: FDA-Public Use
  Company Number: US-TAKEDA-2021TUS012814

PATIENT
  Sex: Male
  Weight: 59 kg

DRUGS (9)
  1. DEXILANT [Suspect]
     Active Substance: DEXLANSOPRAZOLE
     Indication: NAUSEA
  2. FAMOTIDINE. [Concomitant]
     Active Substance: FAMOTIDINE
     Dosage: 20 MILLIGRAM, TID
     Route: 065
  3. GAVISCON [ALUMINIUM HYDROXIDE;MAGNESIUM CARBONATE] [Concomitant]
     Indication: ANTACID THERAPY
     Dosage: UNK
     Route: 065
  4. DEXILANT [Suspect]
     Active Substance: DEXLANSOPRAZOLE
     Indication: FLATULENCE
  5. MIRALAX [Concomitant]
     Active Substance: POLYETHYLENE GLYCOL 3350
     Dosage: UNK
     Route: 065
  6. METAMUCIL [Concomitant]
     Active Substance: PLANTAGO SEED
     Dosage: UNK
     Route: 065
  7. DEXILANT [Suspect]
     Active Substance: DEXLANSOPRAZOLE
     Indication: GASTROOESOPHAGEAL REFLUX DISEASE
  8. SIMETHICONE (DIMETHICONE) [Concomitant]
     Active Substance: DIMETHICONE
     Dosage: UNK
     Route: 065
  9. DEXILANT [Suspect]
     Active Substance: DEXLANSOPRAZOLE
     Indication: ABDOMINAL PAIN UPPER
     Dosage: 30 MILLIGRAM, QD
     Route: 065
     Dates: start: 20210225

REACTIONS (6)
  - Dizziness [Unknown]
  - Dyspepsia [Unknown]
  - Tremor [Unknown]
  - Nausea [Unknown]
  - Malaise [Unknown]
  - Diarrhoea [Unknown]
